FAERS Safety Report 23859800 (Version 2)
Quarter: 2024Q3

REPORT INFORMATION
  Report Type: Report from Study
  Country: US (occurrence: US)
  Receive Date: 20240515
  Receipt Date: 20240701
  Transmission Date: 20241016
  Serious: Yes (Hospitalization, Disabling)
  Sender: JOHNSON AND JOHNSON
  Company Number: US-JNJFOC-20240538228

PATIENT
  Age: 72 Year
  Sex: Male

DRUGS (1)
  1. TECVAYLI [Suspect]
     Active Substance: TECLISTAMAB-CQYV
     Indication: Plasma cell myeloma refractory
     Dosage: FIRST STEP UP DOSE OF 0.06 MG/KG?FIFTH LINE OF TREATMENT, TECLISTAMAB (DAY 5 BEFORE HOSPITALIZATION)
     Route: 058

REACTIONS (3)
  - Progressive multifocal leukoencephalopathy [Not Recovered/Not Resolved]
  - COVID-19 [Unknown]
  - Lymphopenia [Recovering/Resolving]
